FAERS Safety Report 10375286 (Version 1)
Quarter: 2014Q1

REPORT INFORMATION
  Report Type: Spontaneous
  Country: US (occurrence: None)
  Receive Date: 20140306
  Receipt Date: 20140306
  Transmission Date: 20141002
  Serious: Yes (Other)
  Sender: FDA-Public Use
  Company Number: 163-21880-13040560

PATIENT
  Age: 71 Year
  Sex: Female

DRUGS (8)
  1. REVLIMID (LENALIDOMIDE) (25 MILLIGRAM, CAPSULES) [Suspect]
     Indication: PLASMA CELL MYELOMA
     Dosage: 25 MG, 21 IN 28 D, PO
     Route: 048
     Dates: start: 201212
  2. ESTRADIOL (ESTRADIOL) (UNKNOWN) [Concomitant]
  3. ASA (ACETYLSALICYLIC ACID) (UNKNOWN) [Concomitant]
  4. CALCIUM (CALCIUM) (UNKNOWN) [Concomitant]
  5. DEXAMETHASONE (DEXAMETHASONE) (UNKNOWN) [Concomitant]
  6. FLUTICASONE (FLUTICASONE) (UNKNOWN) [Concomitant]
  7. LEVOTHROID (LEVOTHYROXINE SODIUM) (UNKNOWN) [Concomitant]
  8. MVI (MVI) (UNKNOWN) [Concomitant]

REACTIONS (1)
  - Deep vein thrombosis [None]
